FAERS Safety Report 6191397-3 (Version None)
Quarter: 2009Q2

REPORT INFORMATION
  Report Type: 
  Country: None (occurrence: None)
  Receive Date: 20090515
  Receipt Date: 20080620
  Transmission Date: 20091009
  Serious: Yes (Other)
  Sender: FDA-Public Use
  Company Number: US-ASTRAZENECA-2008UW04631

PATIENT
  Age: 9137 Day
  Sex: Female
  Weight: 82.6 kg

DRUGS (10)
  1. SEROQUEL [Suspect]
     Indication: DEPRESSION
     Dosage: 100 TO 800 MG
     Route: 048
     Dates: start: 20060909
  2. SEROQUEL [Suspect]
     Indication: BIPOLAR DISORDER
     Dosage: 100 TO 800 MG
     Route: 048
     Dates: start: 20060909
  3. SEROQUEL [Suspect]
     Dosage: 100-400 MG
     Route: 048
     Dates: start: 20060910
  4. SEROQUEL [Suspect]
     Dosage: 100-400 MG
     Route: 048
     Dates: start: 20060910
  5. PROZAC [Concomitant]
     Dosage: 20-80 MG
     Route: 048
  6. DEPAKOTE [Concomitant]
     Route: 065
  7. RISPERDAL [Concomitant]
     Route: 065
  8. TRAZODONE HCL [Concomitant]
     Route: 065
  9. REGULAR INSULIN [Concomitant]
     Dosage: 10 UNITS
     Route: 065
  10. GLUCOTROL [Concomitant]
     Route: 065
     Dates: start: 20070328

REACTIONS (7)
  - DIABETES MELLITUS [None]
  - DRY MOUTH [None]
  - EYE PRURITUS [None]
  - HYPOAESTHESIA [None]
  - INTENTIONAL SELF-INJURY [None]
  - NAUSEA [None]
  - VISION BLURRED [None]
